FAERS Safety Report 5588882-1 (Version None)
Quarter: 2008Q1

REPORT INFORMATION
  Report Type: 
  Country: None (occurrence: None)
  Receive Date: 20080111
  Receipt Date: 20080102
  Transmission Date: 20080703
  Serious: Yes (Other)
  Sender: FDA-Public Use
  Company Number: JP-RANBAXY-2007RR-12119

PATIENT

DRUGS (1)
  1. FUROSEMIDE RPG 20 MG COMPRIME SECABLE [Suspect]
     Indication: PITTING OEDEMA
     Dosage: 20 MG, QD
     Dates: start: 20060501

REACTIONS (1)
  - VITAMIN B1 DEFICIENCY [None]
